FAERS Safety Report 4963419-6 (Version None)
Quarter: 2006Q1

REPORT INFORMATION
  Report Type: 
  Country: None (occurrence: None)
  Receive Date: 20060330
  Receipt Date: 20060316
  Transmission Date: 20060701
  Serious: Yes (Death, Other)
  Sender: FDA-Public Use
  Company Number: USA-2006-0023851

PATIENT
  Age: 43 Year
  Sex: Male

DRUGS (5)
  1. OXYCONTIN [Suspect]
     Dosage: 80 MG, Q12H
  2. SOMA [Concomitant]
  3. XANAX [Concomitant]
  4. TRAZODONE HCL [Concomitant]
  5. PAXIL (PAROXTINE HYDROCHLORIDE) [Concomitant]

REACTIONS (3)
  - COMPLETED SUICIDE [None]
  - INTENTIONAL SELF-INJURY [None]
  - OVERDOSE [None]
